FAERS Safety Report 6408703-4 (Version None)
Quarter: 2009Q4

REPORT INFORMATION
  Report Type: 
  Country: None (occurrence: None)
  Receive Date: 20091021
  Receipt Date: 20091015
  Transmission Date: 20100525
  Serious: Yes (Death)
  Sender: FDA-Public Use
  Company Number: US-JNJFOC-20091005113

PATIENT
  Sex: Female
  Weight: 108.86 kg

DRUGS (18)
  1. DOXORUBICIN HCL [Suspect]
     Dosage: CYCLE 2
     Route: 042
  2. DOXORUBICIN HCL [Suspect]
     Indication: MULTIPLE MYELOMA
     Dosage: CYCLE 1
     Route: 042
  3. VELCADE [Suspect]
     Route: 042
  4. VELCADE [Suspect]
     Indication: MULTIPLE MYELOMA
     Dosage: CYCLE 1
     Route: 042
  5. DEXAMETHASONE [Suspect]
     Route: 065
  6. DEXAMETHASONE [Suspect]
     Indication: MULTIPLE MYELOMA
     Dosage: CYCLE 1
     Route: 065
  7. MULTI-VITAMINS [Concomitant]
     Indication: NUTRITIONAL SUPPORT
     Route: 048
  8. LISINOPRIL [Concomitant]
     Indication: HYPERTENSION
     Route: 048
  9. LOVAZA [Concomitant]
     Indication: NUTRITIONAL SUPPORT
     Route: 048
  10. ZANTAC [Concomitant]
     Indication: DYSPEPSIA
     Route: 048
  11. SYNTHROID [Concomitant]
     Indication: HYPOTHYROIDISM
     Route: 048
  12. MORPHINE [Concomitant]
     Indication: BACK PAIN
     Route: 048
  13. VICODIN [Concomitant]
     Indication: BACK PAIN
     Route: 048
  14. MAGNESIUM CITRATE [Concomitant]
     Indication: CONSTIPATION
     Route: 048
  15. MOM [Concomitant]
     Indication: CONSTIPATION
     Route: 048
  16. INSULIN [Concomitant]
     Indication: DIABETES MELLITUS
     Route: 065
  17. LYRICA [Concomitant]
     Route: 048
  18. LYRICA [Concomitant]
     Indication: PAIN
     Route: 048

REACTIONS (1)
  - DEATH [None]
